FAERS Safety Report 13715010 (Version 1)
Quarter: 2017Q3

REPORT INFORMATION
  Report Type: Spontaneous
  Country: US (occurrence: US)
  Receive Date: 20170704
  Receipt Date: 20170704
  Transmission Date: 20171127
  Serious: No
  Sender: FDA-Public Use
  Company Number: US-JNJFOC-20170518409

PATIENT
  Sex: Female

DRUGS (1)
  1. INVOKANA [Suspect]
     Active Substance: CANAGLIFLOZIN
     Indication: PRODUCT USED FOR UNKNOWN INDICATION
     Dosage: STARTED AROUND MAY-2016
     Route: 065
     Dates: start: 201605

REACTIONS (4)
  - Blood potassium increased [Unknown]
  - Back pain [Unknown]
  - Fungal infection [Unknown]
  - Blood cholesterol increased [Unknown]
